FAERS Safety Report 11369112 (Version 1)
Quarter: 2015Q3

REPORT INFORMATION
  Report Type: Spontaneous
  Country: US (occurrence: US)
  Receive Date: 20150812
  Receipt Date: 20150812
  Transmission Date: 20151125
  Serious: Yes (Other)
  Sender: FDA-Public Use
  Company Number: US-SA-2015SA118433

PATIENT
  Age: 30 Year
  Sex: Male

DRUGS (1)
  1. ICY HOT MEDICATED NO MESS APPLICATOR [Suspect]
     Active Substance: MENTHOL
     Indication: PAIN
     Route: 065

REACTIONS (2)
  - Application site warmth [Unknown]
  - Blister [Unknown]

NARRATIVE: CASE EVENT DATE: 201508
